FAERS Safety Report 15180309 (Version 2)
Quarter: 2018Q3

REPORT INFORMATION
  Report Type: Spontaneous
  Country: AR (occurrence: AR)
  Receive Date: 20180723
  Receipt Date: 20180731
  Transmission Date: 20181010
  Serious: Yes (Other)
  Sender: FDA-Public Use
  Company Number: AR-ROCHE-2158491

PATIENT
  Age: 66 Year
  Sex: Male

DRUGS (4)
  1. CAPECITABINE. [Concomitant]
     Active Substance: CAPECITABINE
     Route: 065
  2. OXALIPLATIN. [Concomitant]
     Active Substance: OXALIPLATIN
  3. AVASTIN [Suspect]
     Active Substance: BEVACIZUMAB
     Indication: COLORECTAL CANCER
     Route: 042
     Dates: start: 2018
  4. VALIUM [Suspect]
     Active Substance: DIAZEPAM
     Indication: MUSCLE CONTRACTURE
     Route: 065

REACTIONS (3)
  - Dysphonia [Unknown]
  - Oedema peripheral [Recovering/Resolving]
  - Oedema genital [Recovering/Resolving]
